FAERS Safety Report 8816241 (Version 1)
Quarter: 2012Q4

REPORT INFORMATION
  Report Type: Spontaneous
  Country: US (occurrence: None)
  Receive Date: 20120927
  Receipt Date: 20120927
  Transmission Date: 20130627
  Serious: No
  Sender: FDA-Public Use
  Company Number: None

PATIENT
  Age: 74 Year
  Sex: Male
  Weight: 72.58 kg

DRUGS (1)
  1. VIAGRA [Suspect]
     Indication: ERECTILE DISTURBANCE
     Dates: start: 20120218, end: 20120925

REACTIONS (1)
  - Drug ineffective [None]
